FAERS Safety Report 10728556 (Version 2)
Quarter: 2015Q1

REPORT INFORMATION
  Report Type: Spontaneous
  Country: DE (occurrence: DE)
  Receive Date: 20150122
  Receipt Date: 20150203
  Transmission Date: 20150721
  Serious: Yes (Congenital Anomaly, Other)
  Sender: FDA-Public Use
  Company Number: DE-DRREDDYS-GER/GER/15/0045511

PATIENT
  Age: 1 Day
  Sex: Female
  Weight: 3.8 kg

DRUGS (3)
  1. FEMIBION SCHWANGERSCHAFT 1 [Concomitant]
     Indication: PRODUCT USED FOR UNKNOWN INDICATION
     Route: 064
     Dates: start: 20140116, end: 20140922
  2. VENLAFAXINE [Suspect]
     Active Substance: VENLAFAXINE HYDROCHLORIDE
     Indication: PRODUCT USED FOR UNKNOWN INDICATION
     Route: 064
     Dates: start: 20131216, end: 20140922
  3. IBUPROFEN. [Concomitant]
     Active Substance: IBUPROFEN
     Indication: PRODUCT USED FOR UNKNOWN INDICATION
     Route: 064
     Dates: start: 20140101, end: 20140101

REACTIONS (2)
  - Foetal exposure during pregnancy [Unknown]
  - Ventricular septal defect [Not Recovered/Not Resolved]

NARRATIVE: CASE EVENT DATE: 20140922
